FAERS Safety Report 21038779 (Version 1)
Quarter: 2022Q3

REPORT INFORMATION
  Report Type: Report from Study
  Country: BR (occurrence: BR)
  Receive Date: 20220704
  Receipt Date: 20220704
  Transmission Date: 20221027
  Serious: Yes (Death, Life-Threatening, Hospitalization, Other)
  Sender: FDA-Public Use
  Company Number: US-CELGENE-USA-20210603759

PATIENT
  Age: 54 Year
  Sex: Male
  Weight: 71 kg

DRUGS (8)
  1. LENALIDOMIDE [Suspect]
     Active Substance: LENALIDOMIDE
     Indication: Plasma cell myeloma
     Dosage: FREQUENCY TEXT: 1-8 DAYS 1-14, CYCLE 9 DAYS 1-21
     Route: 048
     Dates: start: 20190618
  2. LENALIDOMIDE [Suspect]
     Active Substance: LENALIDOMIDE
     Dosage: FREQUENCY TEXT: 1-8 DAYS 1-14, CYCLE 9 DAYS 1-21
     Route: 048
     Dates: start: 20210505
  3. DEXAMETHASONE [Suspect]
     Active Substance: DEXAMETHASONE
     Indication: Plasma cell myeloma
     Dosage: FREQUENCY TEXT: ON DAYS 1,2,4,5,8,11 AND 12
     Route: 048
  4. DEXAMETHASONE [Suspect]
     Active Substance: DEXAMETHASONE
     Dosage: FREQUENCY TEXT: 1,8,15 AND 22
     Route: 048
  5. DEXAMETHASONE [Suspect]
     Active Substance: DEXAMETHASONE
     Dosage: CYCLES 1-8; ON DAYS 1, 2, 4, 5, 8, 11, AND 12
     Route: 048
     Dates: start: 20210428
  6. DARATUMUMAB [Suspect]
     Active Substance: DARATUMUMAB
     Indication: Plasma cell myeloma
     Dosage: FREQUENCY TEXT: NOT PROVIDED
     Route: 058
     Dates: start: 20190618
  7. DARATUMUMAB [Suspect]
     Active Substance: DARATUMUMAB
     Dosage: 1800 MILLIGRAM
     Route: 058
     Dates: start: 20210505
  8. BORTEZOMIB [Suspect]
     Active Substance: BORTEZOMIB
     Indication: Plasma cell myeloma
     Dosage: FREQUENCY TEXT: NOT PROVIDED
     Route: 058
     Dates: start: 20190618, end: 20191119

REACTIONS (5)
  - COVID-19 [Not Recovered/Not Resolved]
  - Pulmonary embolism [Fatal]
  - Atrial fibrillation [Fatal]
  - Multiple organ dysfunction syndrome [Fatal]
  - Febrile neutropenia [Recovered/Resolved]

NARRATIVE: CASE EVENT DATE: 20210602
